FAERS Safety Report 5074242-9 (Version None)
Quarter: 2006Q3

REPORT INFORMATION
  Report Type: 
  Country: None (occurrence: None)
  Receive Date: 20060803
  Receipt Date: 20060718
  Transmission Date: 20061208
  Serious: Yes (Hospitalization)
  Sender: FDA-Public Use
  Company Number: DE200607003131

PATIENT
  Age: 13 Year
  Sex: Male
  Weight: 42 kg

DRUGS (1)
  1. STRATTERA [Suspect]
     Dosage: 60 MG, DAILY (1/D), ORAL
     Route: 048

REACTIONS (3)
  - BLOOD ALCOHOL INCREASED [None]
  - SOPOR [None]
  - VOMITING [None]
